FAERS Safety Report 18516418 (Version 1)
Quarter: 2020Q4

REPORT INFORMATION
  Report Type: Spontaneous
  Country: US (occurrence: US)
  Receive Date: 20201118
  Receipt Date: 20201118
  Transmission Date: 20210114
  Serious: Yes (Life-Threatening)
  Sender: FDA-Public Use
  Company Number: None

PATIENT
  Age: 62 Year
  Sex: Female
  Weight: 56.25 kg

DRUGS (22)
  1. BUPROPION XL [Concomitant]
     Active Substance: BUPROPION
  2. COREG [Concomitant]
     Active Substance: CARVEDILOL
  3. DITROPAN XL [Concomitant]
     Active Substance: OXYBUTYNIN CHLORIDE
  4. D-MANNOSE [Concomitant]
  5. VITAMIN D3 [Concomitant]
     Active Substance: CHOLECALCIFEROL
  6. PROVIGIL [Concomitant]
     Active Substance: MODAFINIL
  7. VAGIFEM [Concomitant]
     Active Substance: ESTRADIOL
  8. ACYCLOVIR. [Concomitant]
     Active Substance: ACYCLOVIR
  9. ESTRACE [Concomitant]
     Active Substance: ESTRADIOL
  10. ASPIRIN. [Concomitant]
     Active Substance: ASPIRIN
  11. TYLENOL [Concomitant]
     Active Substance: ACETAMINOPHEN
  12. PROBIOTIC [Concomitant]
     Active Substance: PROBIOTICS NOS
  13. PRINIVIL [Concomitant]
     Active Substance: LISINOPRIL
  14. MYRBETRIQ [Suspect]
     Active Substance: MIRABEGRON
     Indication: HYPERTONIC BLADDER
     Dosage: ?          QUANTITY:1 TABLET(S);?
     Route: 048
     Dates: start: 20201117, end: 20201118
  15. KENALOG [Concomitant]
     Active Substance: TRIAMCINOLONE ACETONIDE
  16. COLACE [Concomitant]
     Active Substance: DOCUSATE SODIUM
  17. ACIPHEX [Concomitant]
     Active Substance: RABEPRAZOLE SODIUM
  18. ZANAFLEX [Concomitant]
     Active Substance: TIZANIDINE HYDROCHLORIDE
  19. CALCIUM [Concomitant]
     Active Substance: CALCIUM
  20. GLUCOSAMINE COMPLEX- MSM [Concomitant]
  21. BACLOFEN. [Concomitant]
     Active Substance: BACLOFEN
  22. FOSAMAX [Concomitant]
     Active Substance: ALENDRONATE SODIUM

REACTIONS (1)
  - Hypotension [None]

NARRATIVE: CASE EVENT DATE: 20201117
